FAERS Safety Report 4616879-4 (Version None)
Quarter: 2005Q1

REPORT INFORMATION
  Report Type: 
  Country: None (occurrence: None)
  Receive Date: 20050321
  Receipt Date: 20030715
  Transmission Date: 20050727
  Serious: No
  Sender: FDA-Public Use
  Company Number: 5727

PATIENT
  Age: 64 Year
  Sex: Female

DRUGS (4)
  1. METHOTREXATE [Suspect]
     Indication: BREAST CANCER
     Dosage: 50 MG/M2 IV
     Route: 042
  2. FLUOROURACIL [Suspect]
     Indication: BREAST CANCER
     Dosage: 600 MG/M2 PER_CYCLE, IV
     Route: 042
  3. CYCLOPHOSPHAMIDE [Suspect]
     Indication: BREAST CANCER
     Dosage: 750 MG/M2 PER_CYCLE, IV
     Route: 042
  4. FOLINIC ACID [Suspect]
     Dosage: PO
     Route: 048

REACTIONS (5)
  - ERYTHEMA [None]
  - INDURATION [None]
  - INFLAMMATION [None]
  - SCAR PAIN [None]
  - ULCER [None]
